FAERS Safety Report 15260369 (Version 1)
Quarter: 2018Q3

REPORT INFORMATION
  Report Type: Spontaneous
  Country: US (occurrence: US)
  Receive Date: 20180719
  Receipt Date: 20180719
  Transmission Date: 20181010
  Serious: Yes (Hospitalization)
  Sender: FDA-Public Use
  Company Number: None

PATIENT
  Age: 63 Year
  Sex: Male
  Weight: 89.4 kg

DRUGS (3)
  1. GUAR GUM (NUTRISOURCE FIBER) [Concomitant]
  2. XELODA [Suspect]
     Active Substance: CAPECITABINE
     Dates: end: 20180215
  3. LOPERIMIDE [Concomitant]

REACTIONS (4)
  - Vomiting [None]
  - Abdominal distension [None]
  - Nausea [None]
  - Ileus [None]

NARRATIVE: CASE EVENT DATE: 20180413
